FAERS Safety Report 24391850 (Version 1)
Quarter: 2024Q4

REPORT INFORMATION
  Report Type: Spontaneous
  Country: US (occurrence: None)
  Receive Date: 20241002
  Receipt Date: 20241002
  Transmission Date: 20250114
  Serious: Yes (Hospitalization)
  Sender: Public
  Company Number: None

PATIENT
  Age: 79 Year
  Sex: Male
  Weight: 78 kg

DRUGS (3)
  1. EMPAGLIFLOZIN [Suspect]
     Active Substance: EMPAGLIFLOZIN
     Indication: Chronic kidney disease
  2. CHLORTHALIDONE [Suspect]
     Active Substance: CHLORTHALIDONE
  3. FUROSEMIDE [Suspect]
     Active Substance: FUROSEMIDE

REACTIONS (5)
  - Blood creatinine increased [None]
  - Urinary tract infection [None]
  - Fluid retention [None]
  - Dysuria [None]
  - Nocturia [None]

NARRATIVE: CASE EVENT DATE: 20240130
